FAERS Safety Report 16616353 (Version 1)
Quarter: 2019Q3

REPORT INFORMATION
  Report Type: Spontaneous
  Country: US (occurrence: US)
  Receive Date: 20190723
  Receipt Date: 20190723
  Transmission Date: 20191004
  Serious: Yes (Other)
  Sender: FDA-Public Use
  Company Number: None

PATIENT
  Sex: Female

DRUGS (1)
  1. PAIN RELIEF PM EXTRA STRENGTH [Suspect]
     Active Substance: ACETAMINOPHEN\DIPHENHYDRAMINE HYDROCHLORIDE
     Dates: start: 20190705, end: 20190705

REACTIONS (3)
  - Wrong product administered [None]
  - Product commingling [None]
  - Dysphoria [None]

NARRATIVE: CASE EVENT DATE: 20190705
